FAERS Safety Report 7687058-1 (Version None)
Quarter: 2011Q3

REPORT INFORMATION
  Report Type: 
  Country: None (occurrence: None)
  Receive Date: 20110816
  Receipt Date: 20110809
  Transmission Date: 20111222
  Serious: Yes (Other)
  Sender: FDA-Public Use
  Company Number: IE-SANOFI-AVENTIS-2011SA051060

PATIENT
  Age: 32 Year
  Sex: Male

DRUGS (2)
  1. AMIODARONE HCL [Suspect]
     Route: 065
     Dates: end: 20110101
  2. MULTAQ [Suspect]
     Route: 065
     Dates: start: 20110301

REACTIONS (1)
  - HYPERTHYROIDISM [None]
